FAERS Safety Report 20495589 (Version 1)
Quarter: 2022Q1

REPORT INFORMATION
  Report Type: Report from Study
  Country: AU (occurrence: AU)
  Receive Date: 20220221
  Receipt Date: 20220221
  Transmission Date: 20220424
  Serious: Yes (Hospitalization)
  Sender: FDA-Public Use
  Company Number: AU-CELGENE-AUS-20220205681

PATIENT
  Age: 61 Year
  Weight: 98 kg

DRUGS (13)
  1. ABRAXANE [Suspect]
     Active Substance: PACLITAXEL
     Indication: Gastrointestinal adenocarcinoma
     Route: 041
     Dates: start: 20211112
  2. ABRAXANE [Suspect]
     Active Substance: PACLITAXEL
     Route: 041
     Dates: start: 20220211
  3. CARBOPLATIN [Suspect]
     Active Substance: CARBOPLATIN
     Indication: Gastrointestinal adenocarcinoma
     Route: 065
     Dates: start: 20211112
  4. CARBOPLATIN [Suspect]
     Active Substance: CARBOPLATIN
     Route: 065
     Dates: start: 20220211
  5. HEPARIN [Concomitant]
     Active Substance: HEPARIN SODIUM
     Indication: Product used for unknown indication
     Dosage: 5000 UNITS
     Route: 058
     Dates: start: 20220211
  6. AMLODIPINE [Concomitant]
     Active Substance: AMLODIPINE BESYLATE
     Indication: Chronic disease
     Dosage: 5 MILLIGRAM
     Route: 048
     Dates: start: 20220212
  7. ESOMEPRAZOLE [Concomitant]
     Active Substance: ESOMEPRAZOLE
     Indication: Chronic disease
     Dosage: 20 MILLIGRAM
     Route: 048
     Dates: start: 20220212
  8. MAGNESIUM ASPARTATE [Concomitant]
     Active Substance: MAGNESIUM ASPARTATE
     Indication: Chronic disease
     Dosage: 1000 MILLIGRAM
     Route: 048
     Dates: start: 20220212
  9. OCTREOTIDE [Concomitant]
     Active Substance: OCTREOTIDE
     Indication: Chronic disease
     Dosage: 1 MILLIGRAM
     Route: 030
     Dates: start: 20220212
  10. ROSUVASTATIN [Concomitant]
     Active Substance: ROSUVASTATIN
     Indication: Chronic disease
     Dosage: 10 MILLIGRAM
     Route: 048
     Dates: start: 20220212
  11. SPIRONOLACTONE [Concomitant]
     Active Substance: SPIRONOLACTONE
     Indication: Product used for unknown indication
     Dosage: 25 MILLIGRAM
     Route: 048
     Dates: start: 20220212
  12. ACETAMINOPHEN [Concomitant]
     Active Substance: ACETAMINOPHEN
     Indication: Product used for unknown indication
     Dosage: 3 GRAM
     Route: 048
     Dates: start: 20220212
  13. CALCIUM CARBONATE [Concomitant]
     Active Substance: CALCIUM CARBONATE
     Indication: Chronic disease
     Dosage: 1200 MILLIGRAM
     Route: 048
     Dates: start: 20220213

REACTIONS (1)
  - Hypercalcaemia [Not Recovered/Not Resolved]

NARRATIVE: CASE EVENT DATE: 20220211
